FAERS Safety Report 8882755 (Version 1)
Quarter: 2012Q4

REPORT INFORMATION
  Report Type: 
  Country: DE (occurrence: DE)
  Receive Date: 20121103
  Receipt Date: 20121103
  Transmission Date: 20130627
  Serious: Yes (Hospitalization)
  Sender: FDA-Public Use
  Company Number: DE-BRISTOL-MYERS SQUIBB COMPANY-17079187

PATIENT
  Sex: Male

DRUGS (1)
  1. MITOMYCIN-C [Suspect]
     Dosage: Inj
     Route: 043

REACTIONS (2)
  - Vertigo [Recovered/Resolved]
  - Rash [Recovered/Resolved]
